FAERS Safety Report 26037980 (Version 3)
Quarter: 2025Q4

REPORT INFORMATION
  Report Type: Report from Study
  Country: EU (occurrence: EU)
  Receive Date: 20251112
  Receipt Date: 20251211
  Transmission Date: 20260117
  Serious: Yes (Hospitalization)
  Sender: ABBVIE
  Company Number: EU-ABBVIE-6497524

PATIENT
  Age: 72 Year
  Sex: Male

DRUGS (11)
  1. FOSCARBIDOPA\FOSLEVODOPA [Suspect]
     Active Substance: FOSCARBIDOPA\FOSLEVODOPA
     Indication: Parkinson^s disease
     Dosage: CRN: 0.19 ML/H, CR: 0.24 ML/H, CRH: 0,27 ML/H, ED 0.30 ML (BLOCKING PERIOD 1:00 H)
     Route: 058
     Dates: start: 20251006, end: 20251007
  2. FOSCARBIDOPA\FOSLEVODOPA [Suspect]
     Active Substance: FOSCARBIDOPA\FOSLEVODOPA
     Dosage: CRN: 0.15 ML/H, CR: 0.22 ML/H, CRH: 0.24 ML/H, ED: 0.30 ML
     Route: 058
     Dates: start: 20251007, end: 20251007
  3. FOSCARBIDOPA\FOSLEVODOPA [Suspect]
     Active Substance: FOSCARBIDOPA\FOSLEVODOPA
     Dosage: CRN: 0.15 ML/H, CR: 0.20 ML/H, CRH: 0.30 ML/H, ED 0.30 ML
     Route: 058
     Dates: start: 20251007, end: 20251007
  4. FOSCARBIDOPA\FOSLEVODOPA [Suspect]
     Active Substance: FOSCARBIDOPA\FOSLEVODOPA
     Dosage: CRN: 0.20 ML/H, CR: 0.28 M/H, CRH: 0.30 ML/H, ED: 0.15 ML,
     Route: 058
     Dates: start: 202510, end: 202510
  5. FOSCARBIDOPA\FOSLEVODOPA [Suspect]
     Active Substance: FOSCARBIDOPA\FOSLEVODOPA
     Dosage: CRN: 0.20 ML/H, CR: 0.28 M/H, CRH: 0.30 ML/H, ED: 0.20 ML
     Route: 058
     Dates: start: 202510, end: 202510
  6. FOSCARBIDOPA\FOSLEVODOPA [Suspect]
     Active Substance: FOSCARBIDOPA\FOSLEVODOPA
     Dosage: CRN 0.25 ML/H, CR 0.32 ML/H, CRH 0.34 ML/H, ED 0.20 ML
     Route: 058
     Dates: start: 202510, end: 202510
  7. FOSCARBIDOPA\FOSLEVODOPA [Suspect]
     Active Substance: FOSCARBIDOPA\FOSLEVODOPA
     Dosage: CRN 0.25ML/H, CR 0.29 ML/H, CRH 0.35 ML/H, ED 0.30 ML
     Route: 058
     Dates: start: 202510, end: 202510
  8. FOSCARBIDOPA\FOSLEVODOPA [Suspect]
     Active Substance: FOSCARBIDOPA\FOSLEVODOPA
     Dosage: CRN 0.25 ML/H, CR 0.29 ML/H, CRH 0.36 ML/H, ED 0.30 ML.
     Route: 058
     Dates: start: 2025, end: 2025
  9. FOSCARBIDOPA\FOSLEVODOPA [Suspect]
     Active Substance: FOSCARBIDOPA\FOSLEVODOPA
     Dosage: CRN 0.30 ML/H, CR 0.42 ML/H, CRH 0.46 ML/H, ED 0.30 ML
     Route: 058
     Dates: start: 2025
  10. FOSCARBIDOPA\FOSLEVODOPA [Suspect]
     Active Substance: FOSCARBIDOPA\FOSLEVODOPA
     Dosage: CRN 0.30 ML/H, CR 0.42 ML/H, CRH 0.46 ML/H, ED 0.30 ML
     Route: 058
     Dates: start: 2025, end: 2025
  11. LEVODOPA [Concomitant]
     Active Substance: LEVODOPA
     Indication: Product used for unknown indication
     Dosage: FOLLOWING RHYTHM: 8:00-09:30-11:00-12:30-14:00-15:30.

REACTIONS (8)
  - Confusional state [Not Recovered/Not Resolved]
  - On and off phenomenon [Not Recovered/Not Resolved]
  - Dyskinesia [Not Recovered/Not Resolved]
  - Nasopharyngitis [Recovering/Resolving]
  - Asthenia [Unknown]
  - Hallucination [Not Recovered/Not Resolved]
  - Pyrexia [Recovering/Resolving]
  - Restlessness [Not Recovered/Not Resolved]

NARRATIVE: CASE EVENT DATE: 20250101
